FAERS Safety Report 24960858 (Version 1)
Quarter: 2025Q1

REPORT INFORMATION
  Report Type: Spontaneous
  Country: US (occurrence: None)
  Receive Date: 20250211
  Receipt Date: 20250211
  Transmission Date: 20250409
  Serious: Yes (Other)
  Sender: FDA-CTU
  Company Number: None

PATIENT
  Age: 56 Year
  Sex: Female
  Weight: 103.5 kg

DRUGS (2)
  1. GAMUNEX-C [Suspect]
     Active Substance: HUMAN IMMUNOGLOBULIN G
     Indication: Myasthenia gravis
     Dosage: FREQUENCY : EVERY OTHER WEEK;?
     Route: 041
     Dates: start: 20250210, end: 20250210
  2. Gamunex-C 10 GM vial [Concomitant]
     Dates: start: 20250210, end: 20250210

REACTIONS (2)
  - Hypersensitivity [None]
  - No reaction on previous exposure to drug [None]

NARRATIVE: CASE EVENT DATE: 20250211
